FAERS Safety Report 16750244 (Version 2)
Quarter: 2020Q4

REPORT INFORMATION
  Report Type: Report from Study
  Country: BR (occurrence: BR)
  Receive Date: 20190828
  Receipt Date: 20201112
  Transmission Date: 20210113
  Serious: Yes (Hospitalization, Other)
  Sender: FDA-Public Use
  Company Number: BR-JNJFOC-20190509969

PATIENT
  Age: 42 Year
  Sex: Female

DRUGS (1)
  1. SIMPONI [Suspect]
     Active Substance: GOLIMUMAB
     Indication: RHEUMATOID ARTHRITIS
     Route: 058
     Dates: start: 20131223

REACTIONS (8)
  - Arthralgia [Unknown]
  - Umbilical hernia [Unknown]
  - Surgery [Unknown]
  - Oophorectomy [Unknown]
  - Muscle hernia [Recovering/Resolving]
  - Appendicitis [Unknown]
  - Abdominal adhesions [Unknown]
  - Cellulitis [Unknown]

NARRATIVE: CASE EVENT DATE: 2018
